FAERS Safety Report 11122356 (Version 2)
Quarter: 2015Q2

REPORT INFORMATION
  Report Type: Spontaneous
  Country: US (occurrence: US)
  Receive Date: 20150519
  Receipt Date: 20150603
  Transmission Date: 20150821
  Serious: Yes (Death, Life-Threatening, Hospitalization, Other)
  Sender: FDA-Public Use
  Company Number: US-009507513-1505USA007058

PATIENT
  Age: 35 Year
  Sex: Male

DRUGS (1)
  1. KEYTRUDA [Suspect]
     Active Substance: PEMBROLIZUMAB
     Indication: HODGKIN^S DISEASE
     Dosage: DOSE/FREQUENCY: 2 MG/KG/ ONE TIME
     Route: 042
     Dates: start: 201504, end: 201504

REACTIONS (4)
  - Lung disorder [Fatal]
  - Death [Fatal]
  - Off label use [Unknown]
  - Respiratory disorder [Fatal]

NARRATIVE: CASE EVENT DATE: 201504
